FAERS Safety Report 10617207 (Version 1)
Quarter: 2014Q4

REPORT INFORMATION
  Report Type: Spontaneous
  Country: US (occurrence: US)
  Receive Date: 20141201
  Receipt Date: 20141201
  Transmission Date: 20150529
  Serious: Yes (Hospitalization)
  Sender: FDA-Public Use
  Company Number: US-SA-2014SA162503

PATIENT
  Age: 38 Year
  Sex: Male
  Weight: 80 kg

DRUGS (15)
  1. ASPIRIN. [Concomitant]
     Active Substance: ASPIRIN
  2. LANTUS [Concomitant]
     Active Substance: INSULIN GLARGINE
  3. PANTOPRAZOLE [Concomitant]
     Active Substance: PANTOPRAZOLE SODIUM
  4. TERAZOSIN [Concomitant]
     Active Substance: TERAZOSIN\TERAZOSIN HYDROCHLORIDE
  5. MULTIVITAMINS [Concomitant]
     Active Substance: VITAMINS
  6. NULOJIX [Suspect]
     Active Substance: BELATACEPT
     Route: 065
     Dates: start: 201406
  7. GABAPENTIN. [Concomitant]
     Active Substance: GABAPENTIN
  8. CYCLOSPORINE. [Concomitant]
     Active Substance: CYCLOSPORINE
  9. HUMALOG [Concomitant]
     Active Substance: INSULIN LISPRO
  10. PLAVIX [Suspect]
     Active Substance: CLOPIDOGREL BISULFATE
     Route: 048
  11. CEFIXIME. [Concomitant]
     Active Substance: CEFIXIME
  12. LIPITOR [Concomitant]
     Active Substance: ATORVASTATIN CALCIUM
  13. COREG [Concomitant]
     Active Substance: CARVEDILOL
  14. BACTRIM [Concomitant]
     Active Substance: SULFAMETHOXAZOLE\TRIMETHOPRIM
     Dosage: DOSE: 1 DOUBLE STRENGTH TABLET ON MONDAY, WEDNESDAY AND FRIDAYS
  15. PREDNISONE. [Concomitant]
     Active Substance: PREDNISONE

REACTIONS (6)
  - Pulmonary mass [Not Recovered/Not Resolved]
  - Granuloma [Not Recovered/Not Resolved]
  - Fibrosis [Not Recovered/Not Resolved]
  - Pyrexia [Not Recovered/Not Resolved]
  - Condition aggravated [Unknown]
  - Dyspnoea [Not Recovered/Not Resolved]
